FAERS Safety Report 10190637 (Version 1)
Quarter: 2014Q2

REPORT INFORMATION
  Report Type: Spontaneous
  Country: US (occurrence: US)
  Receive Date: 20140523
  Receipt Date: 20140523
  Transmission Date: 20141212
  Serious: Yes (Other)
  Sender: FDA-Public Use
  Company Number: US-009507513-1405USA009022

PATIENT
  Sex: Female

DRUGS (1)
  1. IMPLANON [Suspect]
     Dosage: UNK
     Route: 059

REACTIONS (5)
  - Surgery [Recovered/Resolved]
  - Mood swings [Unknown]
  - Headache [Unknown]
  - Medical device complication [Not Recovered/Not Resolved]
  - Menorrhagia [Unknown]
